FAERS Safety Report 21321976 (Version 9)
Quarter: 2023Q1

REPORT INFORMATION
  Report Type: Report from Study
  Country: US (occurrence: US)
  Receive Date: 20220912
  Receipt Date: 20230210
  Transmission Date: 20230417
  Serious: No
  Sender: FDA-Public Use
  Company Number: US-NOVARTISTESTPH-NVSC2022US202825

PATIENT
  Age: 12 Year
  Sex: Female

DRUGS (4)
  1. VIJOICE [Suspect]
     Active Substance: ALPELISIB
     Indication: PIK3CA related overgrowth spectrum
     Dosage: 125 MG, QD
     Route: 048
     Dates: start: 2018
  2. VIJOICE [Suspect]
     Active Substance: ALPELISIB
     Dosage: 125 MG, QD
     Route: 048
     Dates: start: 20220504
  3. VIJOICE [Suspect]
     Active Substance: ALPELISIB
     Dosage: 125 MG, QD
     Route: 048
     Dates: start: 20220609, end: 20221205
  4. VIJOICE [Suspect]
     Active Substance: ALPELISIB
     Dosage: 125 MG, QD
     Route: 048
     Dates: start: 20220522, end: 20230125

REACTIONS (7)
  - Hypoaesthesia [Unknown]
  - Paraesthesia [Unknown]
  - Stomatitis [Unknown]
  - Appetite disorder [Unknown]
  - Nasopharyngitis [Unknown]
  - Muscle spasms [Unknown]
  - Chest pain [Unknown]

NARRATIVE: CASE EVENT DATE: 20220522
